FAERS Safety Report 6632644-0 (Version None)
Quarter: 2010Q1

REPORT INFORMATION
  Report Type: 
  Country: None (occurrence: None)
  Receive Date: 20100312
  Receipt Date: 20100302
  Transmission Date: 20100710
  Serious: Yes (Hospitalization)
  Sender: FDA-Public Use
  Company Number: GB-WYE-H13860010

PATIENT
  Age: 59 Year
  Sex: Male

DRUGS (1)
  1. EFFEXOR [Suspect]

REACTIONS (2)
  - AGGRESSION [None]
  - SEROTONIN SYNDROME [None]
